FAERS Safety Report 10745923 (Version 1)
Quarter: 2015Q1

REPORT INFORMATION
  Report Type: Spontaneous
  Country: ES (occurrence: ES)
  Receive Date: 20150128
  Receipt Date: 20150128
  Transmission Date: 20150721
  Serious: Yes (Hospitalization)
  Sender: FDA-Public Use
  Company Number: ES-ASTRAZENECA-2015SE07130

PATIENT
  Age: 68 Year
  Sex: Male

DRUGS (3)
  1. APOCARD [Concomitant]
     Active Substance: FLECAINIDE ACETATE
     Route: 048
     Dates: end: 20140924
  2. CRESTOR [Suspect]
     Active Substance: ROSUVASTATIN CALCIUM
     Route: 048
     Dates: start: 201312, end: 20141119
  3. ADIRO [Concomitant]
     Active Substance: ASPIRIN
     Route: 048
     Dates: end: 20140924

REACTIONS (3)
  - Pancreatic steatosis [Recovered/Resolved]
  - Pancreatitis acute [Recovered/Resolved]
  - Pancreatic pseudocyst [Recovered/Resolved]

NARRATIVE: CASE EVENT DATE: 20140816
